FAERS Safety Report 19708543 (Version 1)
Quarter: 2021Q3

REPORT INFORMATION
  Report Type: Spontaneous
  Country: GB (occurrence: GB)
  Receive Date: 20210817
  Receipt Date: 20210817
  Transmission Date: 20211014
  Serious: Yes (Death)
  Sender: FDA-Public Use
  Company Number: GB-B.BRAUN MEDICAL INC.-2115165

PATIENT
  Age: 55 Year

DRUGS (17)
  1. MAGNESIUM SULFATE. [Suspect]
     Active Substance: MAGNESIUM SULFATE
  2. BAXTER PRODUCT [SODIUM CHLORIDE] [Suspect]
     Active Substance: SODIUM CHLORIDE
  3. CALCIUM CHLORIDE. [Suspect]
     Active Substance: CALCIUM CHLORIDE
  4. BAXTER PRODUCT [SODIUM GLYCEROPHOSPHATE] [Suspect]
     Active Substance: SODIUM GLYCEROPHOSPHATE
  5. SOLIVITO N [Suspect]
     Active Substance: VITAMINS
  6. POTASSIUM CHLORIDE. [Suspect]
     Active Substance: POTASSIUM CHLORIDE
  7. CERNEVIT [Suspect]
     Active Substance: VITAMINS
  8. ASCORBIC ACID. [Suspect]
     Active Substance: ASCORBIC ACID
  9. SODIUM CHLORIDE. [Suspect]
     Active Substance: SODIUM CHLORIDE
  10. SYNTHAMIN [Suspect]
     Active Substance: AMINO ACIDS
  11. BAXTER PRODUCT (WATER FOR TPN) [Suspect]
     Active Substance: WATER
  12. SMOFLIPID [Suspect]
     Active Substance: FISH OIL\MEDIUM-CHAIN TRIGLYCERIDES\OLIVE OIL\SOYBEAN OIL
  13. NUTRYELT [Suspect]
     Active Substance: IRON\MINERALS\POTASSIUM IOD\SODIUM FLUORIDE\SODIUM MOLYBDATE\SODIUM SELENITE\ZINC
  14. WATER FOR TPN [Suspect]
     Active Substance: WATER
  15. DEXTROSE INJECTIONS USP 0264?7510?00 0264?7510?20 [Suspect]
     Active Substance: DEXTROSE
     Indication: PARENTERAL NUTRITION
  16. VITALIPID N ADULT [Suspect]
     Active Substance: ERGOCALCIFEROL\PHYTONADIONE\RETINOL\TOCOPHEROL
  17. SODIUM GLYCEROPHOSPHATE 30% [Suspect]
     Active Substance: SODIUM GLYCEROPHOSPHATE

REACTIONS (1)
  - Death [None]
